FAERS Safety Report 8317645-9 (Version None)
Quarter: 2012Q2

REPORT INFORMATION
  Report Type: 
  Country: None (occurrence: None)
  Receive Date: 20120427
  Receipt Date: 20090625
  Transmission Date: 20120825
  Serious: No
  Sender: FDA-Public Use
  Company Number: US-TEVA-2009007612

PATIENT
  Sex: Female
  Weight: 85.352 kg

DRUGS (11)
  1. NUVIGIL [Suspect]
     Indication: SOMNOLENCE
     Route: 048
     Dates: start: 20090623
  2. ZYPREXA [Concomitant]
  3. TRIAMTERENE [Concomitant]
     Dates: start: 19990101
  4. MULTI-VITAMIN [Concomitant]
  5. BIRTH CONTROL PILL [Concomitant]
  6. CALCIUM [Concomitant]
  7. NIASPAN [Concomitant]
     Dates: start: 20020101
  8. KLOR-CON [Concomitant]
     Dates: start: 20030101
  9. ALPRAZOLAM [Concomitant]
     Dates: start: 19990101
  10. LEVOXYL [Concomitant]
     Dates: start: 20020101
  11. LEXAPRO [Concomitant]
     Dates: start: 20040101

REACTIONS (1)
  - HEADACHE [None]
